FAERS Safety Report 4300756-2 (Version None)
Quarter: 2004Q1

REPORT INFORMATION
  Report Type: 
  Country: None (occurrence: None)
  Receive Date: 20040218
  Receipt Date: 20040203
  Transmission Date: 20041129
  Serious: Yes (Life-Threatening)
  Sender: FDA-Public Use
  Company Number: 2003IM001018

PATIENT
  Age: 73 Year
  Sex: Female
  Weight: 117.9352 kg

DRUGS (13)
  1. ACTIMMUNE [Suspect]
     Indication: HEPATIC CIRRHOSIS
     Dosage: 100 UG; TIW; SUBCUTANEOUS
     Route: 058
     Dates: start: 20021024, end: 20030812
  2. ACTIMMUNE [Suspect]
     Indication: HEPATIC FIBROSIS
     Dosage: 100 UG; TIW; SUBCUTANEOUS
     Route: 058
     Dates: start: 20021024, end: 20030812
  3. ACTIMMUNE [Suspect]
     Indication: HEPATITIS C
     Dosage: 100 UG; TIW; SUBCUTANEOUS
     Route: 058
     Dates: start: 20021024, end: 20030812
  4. FUROSEMIDE [Concomitant]
  5. LEVOTHYROXINE SODIUM [Concomitant]
  6. CARDIZEM [Concomitant]
  7. OXYCODONE HCL [Concomitant]
  8. ACETAMINOPHEN [Concomitant]
  9. IBUPROFEN [Concomitant]
  10. PEPCID [Concomitant]
  11. TEMAZEPAM [Concomitant]
  12. POTASSIUM CHLORIDE [Concomitant]
  13. KEFLEX [Concomitant]

REACTIONS (2)
  - CERVIX CARCINOMA [None]
  - UPPER RESPIRATORY TRACT INFECTION [None]
